FAERS Safety Report 10086482 (Version 1)
Quarter: 2014Q2

REPORT INFORMATION
  Report Type: Spontaneous
  Country: BR (occurrence: BR)
  Receive Date: 20140418
  Receipt Date: 20140418
  Transmission Date: 20141212
  Serious: Yes (Hospitalization)
  Sender: FDA-Public Use
  Company Number: BR-ASTRAZENECA-2014SE25880

PATIENT
  Age: 75 Year
  Sex: Male

DRUGS (3)
  1. BRILINTA [Suspect]
     Route: 048
     Dates: start: 2013
  2. UNKNOWN 1 [Concomitant]
     Indication: BLOOD CHOLESTEROL INCREASED
     Route: 048
  3. UNKNOWN 2 [Concomitant]
     Indication: ANTICOAGULANT THERAPY
     Route: 048

REACTIONS (2)
  - Pneumonia [Recovered/Resolved]
  - Off label use [Not Recovered/Not Resolved]
